FAERS Safety Report 21009360 (Version 1)
Quarter: 2022Q2

REPORT INFORMATION
  Report Type: Report from Study
  Country: US (occurrence: None)
  Receive Date: 20220627
  Receipt Date: 20220627
  Transmission Date: 20220720
  Serious: Yes (Hospitalization)
  Sender: FDA-Public Use
  Company Number: US-Eisai Inc (Eisai China)-EC-2022-117504

PATIENT
  Age: 41 Year
  Sex: Female

DRUGS (4)
  1. LENVIMA [Suspect]
     Active Substance: LENVATINIB
     Indication: Malignant neoplasm of thymus
     Route: 048
     Dates: start: 20220210, end: 20220517
  2. LENVIMA [Suspect]
     Active Substance: LENVATINIB
     Indication: Rheumatic disorder
     Route: 048
     Dates: start: 20220518
  3. LENVIMA [Suspect]
     Active Substance: LENVATINIB
     Indication: Metastases to liver
  4. LENVIMA [Suspect]
     Active Substance: LENVATINIB
     Indication: Cholangiocarcinoma

REACTIONS (1)
  - Hypertension [Not Recovered/Not Resolved]

NARRATIVE: CASE EVENT DATE: 20220101
